FAERS Safety Report 13362122 (Version 1)
Quarter: 2017Q1

REPORT INFORMATION
  Report Type: Spontaneous
  Country: US (occurrence: US)
  Receive Date: 20170321
  Receipt Date: 20170321
  Transmission Date: 20170429
  Serious: Yes (Other)
  Sender: FDA-Public Use
  Company Number: None

PATIENT
  Age: 69 Year
  Sex: Male

DRUGS (1)
  1. REVLIMID [Suspect]
     Active Substance: LENALIDOMIDE
     Indication: PLASMA CELL MYELOMA
     Dosage: 25MG DAILY X21D/28D ORAL
     Route: 048

REACTIONS (4)
  - Urinary tract infection [None]
  - Pneumonia [None]
  - Urosepsis [None]
  - Klebsiella infection [None]

NARRATIVE: CASE EVENT DATE: 20131022
